FAERS Safety Report 16944534 (Version 2)
Quarter: 2021Q2

REPORT INFORMATION
  Report Type: Spontaneous
  Country: US (occurrence: US)
  Receive Date: 20191022
  Receipt Date: 20210406
  Transmission Date: 20210716
  Serious: Yes (Other)
  Sender: FDA-Public Use
  Company Number: US-ELI_LILLY_AND_COMPANY-US201910007839

PATIENT
  Sex: Female

DRUGS (2)
  1. FORTEO [Suspect]
     Active Substance: TERIPARATIDE
     Indication: PRODUCT USED FOR UNKNOWN INDICATION
     Dosage: UNK UNK, UNKNOWN
     Route: 065
  2. HYDROCHLOROTHIAZIDE. [Suspect]
     Active Substance: HYDROCHLOROTHIAZIDE
     Indication: PRODUCT USED FOR UNKNOWN INDICATION
     Dosage: 12.5 MG, UNKNOWN
     Route: 065

REACTIONS (23)
  - Thrombosis [Unknown]
  - Vein disorder [Unknown]
  - Brain hypoxia [Unknown]
  - Peripheral vascular disorder [Unknown]
  - Lymphadenopathy [Unknown]
  - Gait inability [Unknown]
  - Blood calcium abnormal [Unknown]
  - Inflammation [Unknown]
  - Pericardial effusion [Unknown]
  - Stitch abscess [Unknown]
  - Renal failure [Unknown]
  - Oxygen saturation decreased [Unknown]
  - Gait disturbance [Unknown]
  - Bone marrow tumour cell infiltration [Unknown]
  - Ligament sprain [Unknown]
  - Urticaria [Unknown]
  - Heart rate decreased [Unknown]
  - Nightmare [Unknown]
  - Wrist fracture [Unknown]
  - Fall [Unknown]
  - Vascular calcification [Unknown]
  - Panic disorder [Unknown]
  - Mental impairment [Unknown]
